FAERS Safety Report 12550991 (Version 2)
Quarter: 2016Q3

REPORT INFORMATION
  Report Type: Spontaneous
  Country: IT (occurrence: IT)
  Receive Date: 20160713
  Receipt Date: 20160722
  Transmission Date: 20161109
  Serious: Yes (Other)
  Sender: FDA-Public Use
  Company Number: IT-ROCHE-1788458

PATIENT
  Age: 53 Year
  Sex: Female

DRUGS (8)
  1. ATAZANAVIR SULFATE [Interacting]
     Active Substance: ATAZANAVIR SULFATE
     Dosage: REDUCED DOSE
     Route: 065
     Dates: start: 201507
  2. RIBAVIRIN. [Suspect]
     Active Substance: RIBAVIRIN
     Indication: HEPATITIS C
     Route: 065
     Dates: start: 201507
  3. ATAZANAVIR SULFATE [Interacting]
     Active Substance: ATAZANAVIR SULFATE
     Indication: HIV INFECTION
     Route: 065
     Dates: start: 2009
  4. PARITAPREVIR [Interacting]
     Active Substance: PARITAPREVIR
     Indication: HEPATITIS C
     Route: 065
     Dates: start: 201507
  5. RALTEGRAVIR. [Interacting]
     Active Substance: RALTEGRAVIR
     Indication: HIV INFECTION
     Route: 065
     Dates: start: 2009
  6. DASABUVIR [Interacting]
     Active Substance: DASABUVIR
     Indication: HEPATITIS C
     Route: 065
     Dates: start: 201507
  7. OMBITASVIR [Interacting]
     Active Substance: OMBITASVIR
     Indication: HEPATITIS C
     Route: 065
     Dates: start: 201507
  8. RITONAVIR. [Interacting]
     Active Substance: RITONAVIR
     Indication: HEPATITIS C
     Route: 065
     Dates: start: 2009, end: 201507

REACTIONS (2)
  - Drug interaction [Unknown]
  - Hyperbilirubinaemia [Recovered/Resolved]
